FAERS Safety Report 9614090 (Version 1)
Quarter: 2013Q4

REPORT INFORMATION
  Report Type: Spontaneous
  Country: IT (occurrence: IT)
  Receive Date: 20131011
  Receipt Date: 20131011
  Transmission Date: 20140711
  Serious: No
  Sender: FDA-Public Use
  Company Number: IT-009507513-1310ITA003941

PATIENT
  Age: 51 Year
  Sex: Male

DRUGS (1)
  1. SYCREST [Suspect]
     Indication: DEPRESSION
     Dosage: 5 MG, DAILY
     Route: 048
     Dates: start: 20130403, end: 20130413

REACTIONS (2)
  - Urticaria [Recovering/Resolving]
  - Hypersensitivity [Recovering/Resolving]
